FAERS Safety Report 11375635 (Version 1)
Quarter: 2015Q3

REPORT INFORMATION
  Report Type: Spontaneous
  Country: JP (occurrence: JP)
  Receive Date: 20150813
  Receipt Date: 20150813
  Transmission Date: 20151125
  Serious: Yes (Other)
  Sender: FDA-Public Use
  Company Number: JP-PFIZER INC-2015266394

PATIENT

DRUGS (2)
  1. INTAL [Suspect]
     Active Substance: CROMOLYN SODIUM
     Dosage: UNK
     Route: 055
  2. BISOLVON [Suspect]
     Active Substance: BROMHEXINE HYDROCHLORIDE
     Dosage: UNK

REACTIONS (2)
  - Shock [Unknown]
  - Anaphylactic reaction [Unknown]
